FAERS Safety Report 7983514-7 (Version None)
Quarter: 2011Q4

REPORT INFORMATION
  Report Type: 
  Country: None (occurrence: None)
  Receive Date: 20111215
  Receipt Date: 20111214
  Transmission Date: 20120403
  Serious: No
  Sender: FDA-Public Use
  Company Number: US-TEVA-313615USA

PATIENT
  Sex: Female
  Weight: 46.308 kg

DRUGS (11)
  1. ESOMEPRAZOLE MAGNESIUM [Concomitant]
     Indication: GASTROOESOPHAGEAL REFLUX DISEASE
     Dosage: 40 MILLIGRAM;
     Route: 048
  2. IRBESARTAN [Concomitant]
     Indication: BLOOD PRESSURE
  3. AZILECT [Suspect]
     Indication: PARKINSON'S DISEASE
     Dosage: 1 MILLIGRAM;
     Route: 048
     Dates: start: 20111214
  4. ESCITALOPRAM OXALATE [Concomitant]
     Indication: DEPRESSION
     Dosage: 10 MILLIGRAM;
     Route: 048
  5. CALCIUM [Concomitant]
     Indication: SUPPLEMENTATION THERAPY
     Dosage: 600 MILLIGRAM;
     Route: 048
  6. COLECALCIFEROL [Concomitant]
     Indication: SUPPLEMENTATION THERAPY
     Route: 048
  7. POLYETHYLENE GLYCOL [Concomitant]
     Route: 048
  8. AMLODIPINE [Concomitant]
     Indication: BLOOD PRESSURE
     Dosage: 5 MILLIGRAM;
     Route: 048
  9. MULTI-VITAMINS [Concomitant]
     Indication: SUPPLEMENTATION THERAPY
     Route: 048
  10. SINEMET [Concomitant]
     Indication: PARKINSON'S DISEASE
     Dosage: 25/100
     Route: 048
  11. DOCUSATE SODIUM [Concomitant]
     Indication: CONSTIPATION
     Dosage: 200 MILLIGRAM;
     Route: 048

REACTIONS (3)
  - DIZZINESS [None]
  - BALANCE DISORDER [None]
  - FALL [None]
